FAERS Safety Report 11464060 (Version 1)
Quarter: 2015Q3

REPORT INFORMATION
  Report Type: Spontaneous
  Country: US (occurrence: US)
  Receive Date: 20150831
  Receipt Date: 20150831
  Transmission Date: 20151125
  Serious: No
  Sender: FDA-Public Use
  Company Number: US-ELI_LILLY_AND_COMPANY-US201106001661

PATIENT
  Age: 64 Year
  Sex: Female

DRUGS (3)
  1. CYMBALTA [Suspect]
     Active Substance: DULOXETINE HYDROCHLORIDE
     Dosage: 60 MG, QD
  2. CYMBALTA [Suspect]
     Active Substance: DULOXETINE HYDROCHLORIDE
     Indication: ARTHRALGIA
     Dosage: 30 MG, QD
  3. CYMBALTA [Suspect]
     Active Substance: DULOXETINE HYDROCHLORIDE
     Dosage: 30 MG, QD

REACTIONS (10)
  - Thyroid function test abnormal [Unknown]
  - Electrocardiogram abnormal [Unknown]
  - Respiratory tract infection [Recovering/Resolving]
  - Paraesthesia [Recovered/Resolved]
  - Aggression [Recovering/Resolving]
  - Affect lability [Unknown]
  - Headache [Unknown]
  - Anger [Recovering/Resolving]
  - Tinnitus [Not Recovered/Not Resolved]
  - Weight increased [Unknown]
